FAERS Safety Report 12062499 (Version 1)
Quarter: 2016Q1

REPORT INFORMATION
  Report Type: Report from Study
  Country: BE (occurrence: BE)
  Receive Date: 20160210
  Receipt Date: 20160210
  Transmission Date: 20160526
  Serious: Yes (Hospitalization)
  Sender: FDA-Public Use
  Company Number: BE-ABBVIE-16P-013-1554612-00

PATIENT
  Sex: Female

DRUGS (3)
  1. DUODOPA [Suspect]
     Active Substance: CARBIDOPA\LEVODOPA
     Dosage: AM=8.4ML; CD=3.1ML/HR DURING 16HRS ; ED=2ML
     Route: 050
     Dates: start: 20151222, end: 20160104
  2. DUODOPA [Suspect]
     Active Substance: CARBIDOPA\LEVODOPA
     Dosage: AM=8.4ML ; CD=3.2ML/HR DURING 16HRS; ED=2ML
     Route: 050
     Dates: start: 20160104
  3. DUODOPA [Suspect]
     Active Substance: CARBIDOPA\LEVODOPA
     Indication: PARKINSON^S DISEASE
     Dosage: AM=8.7ML; CD=3ML/HR DURING 16HRS; ED=2ML
     Route: 050
     Dates: start: 20151221, end: 20151222

REACTIONS (1)
  - Hip fracture [Unknown]
